FAERS Safety Report 6182347-4 (Version None)
Quarter: 2009Q2

REPORT INFORMATION
  Report Type: 
  Country: None (occurrence: None)
  Receive Date: 20090507
  Receipt Date: 20090428
  Transmission Date: 20091009
  Serious: Yes (Hospitalization)
  Sender: FDA-Public Use
  Company Number: PHHO2008AU15408

PATIENT
  Sex: Male
  Weight: 79.2 kg

DRUGS (6)
  1. NEORAL [Suspect]
     Indication: RENAL TRANSPLANT
     Dosage: 250 UNK, BID
     Dates: start: 20081211
  2. NO TREATMENT RECEIVED NOMED [Suspect]
     Indication: RENAL TRANSPLANT
  3. MYFORTIC [Concomitant]
     Indication: RENAL TRANSPLANT
     Dosage: 720 UNK, BID
     Dates: start: 20081212
  4. PREDNISONE [Concomitant]
     Indication: RENAL TRANSPLANT
     Dosage: 25 MG DAILY
     Dates: start: 20081213
  5. ATENOLOL [Concomitant]
  6. PRAZSOIN HCL [Concomitant]

REACTIONS (6)
  - BLOOD CREATININE INCREASED [None]
  - GLOMERULAR VASCULAR DISORDER [None]
  - HYPERTENSION [None]
  - NEPHROPATHY TOXIC [None]
  - THERAPEUTIC AGENT TOXICITY [None]
  - THROMBOSIS [None]
